FAERS Safety Report 12256221 (Version 1)
Quarter: 2016Q2

REPORT INFORMATION
  Report Type: Spontaneous
  Country: US (occurrence: US)
  Receive Date: 20160412
  Receipt Date: 20160412
  Transmission Date: 20160815
  Serious: Yes (Hospitalization, Other)
  Sender: FDA-Public Use
  Company Number: US-TEVA-650229USA

PATIENT
  Sex: Female
  Weight: 65.83 kg

DRUGS (2)
  1. FLUOXETINE [Suspect]
     Active Substance: FLUOXETINE HYDROCHLORIDE
     Indication: DEPRESSION
     Dosage: 20 MILLIGRAM DAILY;
     Route: 048
  2. COUMADIN [Suspect]
     Active Substance: WARFARIN SODIUM
     Route: 065

REACTIONS (7)
  - Renal pain [Unknown]
  - Renal disorder [Unknown]
  - Product contamination [Unknown]
  - Hospitalisation [Unknown]
  - Renal failure [Unknown]
  - Leukaemia [Unknown]
  - Drug administration error [Unknown]
